FAERS Safety Report 12860154 (Version 1)
Quarter: 2016Q4

REPORT INFORMATION
  Report Type: Report from Study
  Country: FR (occurrence: FR)
  Receive Date: 20161019
  Receipt Date: 20161019
  Transmission Date: 20170207
  Serious: Yes (Hospitalization)
  Sender: FDA-Public Use
  Company Number: FR-ROCHE-1842278

PATIENT
  Sex: Female

DRUGS (12)
  1. RITUXIMAB [Suspect]
     Active Substance: RITUXIMAB
     Route: 042
     Dates: start: 20080107
  2. CORTANCYL [Concomitant]
     Active Substance: PREDNISONE
     Dosage: 07/DEC/2006, 21/JAN/2008
     Route: 065
     Dates: start: 20050913
  3. PLAQUENIL [Concomitant]
     Active Substance: HYDROXYCHLOROQUINE SULFATE
  4. ORENCIA [Concomitant]
     Active Substance: ABATACEPT
     Indication: RHEUMATOID ARTHRITIS
     Route: 065
     Dates: start: 20090723, end: 20100604
  5. RITUXIMAB [Suspect]
     Active Substance: RITUXIMAB
     Indication: RHEUMATOID ARTHRITIS
     Route: 042
     Dates: start: 20050827
  6. RITUXIMAB [Suspect]
     Active Substance: RITUXIMAB
     Route: 042
     Dates: start: 20061123
  7. METHOTREXATE. [Concomitant]
     Active Substance: METHOTREXATE
     Dosage: 07/DEC/2006,
     Route: 065
     Dates: start: 20050827
  8. RITUXIMAB [Suspect]
     Active Substance: RITUXIMAB
     Route: 042
     Dates: start: 20061207
  9. HYDROXYCHLOROQUINE [Concomitant]
     Active Substance: HYDROXYCHLOROQUINE
     Route: 065
     Dates: start: 20080121, end: 20100126
  10. RITUXIMAB [Suspect]
     Active Substance: RITUXIMAB
     Route: 042
     Dates: start: 20050913
  11. RITUXIMAB [Suspect]
     Active Substance: RITUXIMAB
     Route: 042
     Dates: start: 20080121, end: 20090727
  12. ROACTEMRA [Concomitant]
     Active Substance: TOCILIZUMAB
     Indication: RHEUMATOID ARTHRITIS
     Route: 065
     Dates: start: 20100604

REACTIONS (8)
  - Hepatocellular injury [Unknown]
  - Bronchitis [Recovered/Resolved]
  - Hypertension [Not Recovered/Not Resolved]
  - Sinusitis [Recovered/Resolved]
  - Limb injury [Recovered/Resolved]
  - Cystitis escherichia [Unknown]
  - Pancreatic neoplasm [Unknown]
  - Unevaluable event [Recovered/Resolved]

NARRATIVE: CASE EVENT DATE: 200612
